FAERS Safety Report 23596537 (Version 1)
Quarter: 2024Q1

REPORT INFORMATION
  Report Type: Spontaneous
  Country: US (occurrence: None)
  Receive Date: 20240304
  Receipt Date: 20240304
  Transmission Date: 20240410
  Serious: No
  Sender: FDA-Public Use
  Company Number: None

PATIENT
  Age: 33 Month
  Sex: Female

DRUGS (6)
  1. VIGABATRIN [Suspect]
     Active Substance: VIGABATRIN
     Indication: Seizure
  2. KEPPRA [Concomitant]
     Active Substance: LEVETIRACETAM
  3. CLONAZEPAM [Concomitant]
     Active Substance: CLONAZEPAM
  4. VITAMIN B6 [Concomitant]
     Active Substance: PYRIDOXINE HYDROCHLORIDE
  5. VIMPAT [Concomitant]
     Active Substance: LACOSAMIDE
  6. FINTEPLA [Concomitant]
     Active Substance: FENFLURAMINE

REACTIONS (1)
  - Drug ineffective [None]

NARRATIVE: CASE EVENT DATE: 20240301
